FAERS Safety Report 17198304 (Version 1)
Quarter: 2019Q4

REPORT INFORMATION
  Report Type: Spontaneous
  Country: SE (occurrence: SE)
  Receive Date: 20191225
  Receipt Date: 20191225
  Transmission Date: 20200122
  Serious: Yes (Hospitalization)
  Sender: FDA-Public Use
  Company Number: SE-TEVA-2019-SE-1157174

PATIENT
  Age: 40 Year
  Sex: Female

DRUGS (3)
  1. PROPAVAN [Suspect]
     Active Substance: PROPIOMAZINE
     Dosage: ^25 MGX1 MAP^
     Route: 048
     Dates: start: 20180710, end: 20180710
  2. IBUPROFEN. [Suspect]
     Active Substance: IBUPROFEN
     Dosage: ^EMPTY MAPS^
     Dates: start: 20180710, end: 20180710
  3. BIOCLAVID [Suspect]
     Active Substance: AMOXICILLIN\CLAVULANIC ACID
     Dosage: ^2 MAPS^
     Dates: start: 20180710, end: 20180710

REACTIONS (5)
  - Overdose [Unknown]
  - Electrocardiogram PQ interval prolonged [Unknown]
  - Depressed level of consciousness [Unknown]
  - Maternal exposure during pregnancy [Unknown]
  - Dyspnoea [Unknown]

NARRATIVE: CASE EVENT DATE: 20180710
